FAERS Safety Report 23769015 (Version 2)
Quarter: 2024Q2

REPORT INFORMATION
  Report Type: Spontaneous
  Country: US (occurrence: US)
  Receive Date: 20240422
  Receipt Date: 20240617
  Transmission Date: 20240716
  Serious: Yes (Death)
  Sender: FDA-Public Use
  Company Number: US-VIIV HEALTHCARE LIMITED-US2024049351

PATIENT
  Age: 49 Year

DRUGS (2)
  1. RILPIVIRINE [Suspect]
     Active Substance: RILPIVIRINE
     Indication: HIV infection
     Dosage: UNK?THERAPY END DATE /APR/2024
     Route: 030
     Dates: start: 202403
  2. CABOTEGRAVIR [Suspect]
     Active Substance: CABOTEGRAVIR
     Indication: HIV infection
     Dosage: UNK?THERAPY END DATE /APR/2024
     Route: 030
     Dates: start: 202403

REACTIONS (1)
  - Cardiovascular disorder [Fatal]
